FAERS Safety Report 7795702-3 (Version None)
Quarter: 2011Q4

REPORT INFORMATION
  Report Type: 
  Country: None (occurrence: None)
  Receive Date: 20111004
  Receipt Date: 20110923
  Transmission Date: 20120403
  Serious: Yes (Other)
  Sender: FDA-Public Use
  Company Number: DE-ELI_LILLY_AND_COMPANY-DE201007002188

PATIENT
  Age: 71 Year
  Sex: Female

DRUGS (7)
  1. ANTIBIOTICS [Concomitant]
     Indication: BRONCHIAL DISORDER
     Dosage: UNK, OTHER
  2. DEKRISTOL [Concomitant]
     Dosage: UNK, MONTHLY (1/M)
  3. CALCIUM WITH VITAMIN D [Concomitant]
  4. FORTEO [Suspect]
     Indication: OSTEOPOROSIS
     Dosage: UNK, DAILY (1/D)
     Route: 058
     Dates: start: 20100625
  5. METAMIZOL [Concomitant]
     Dosage: UNK, UNKNOWN
     Route: 065
  6. PAMBA [Concomitant]
     Dosage: UNK, 3/D
     Route: 065
  7. PROCHLORPERAZINE [Concomitant]

REACTIONS (8)
  - NAUSEA [None]
  - MUSCLE SPASMS [None]
  - HYPERHIDROSIS [None]
  - HYPOTENSION [None]
  - MYALGIA [None]
  - GASTRIC DISORDER [None]
  - CARDIOVASCULAR DISORDER [None]
  - VERTIGO [None]
